FAERS Safety Report 4319888-8 (Version None)
Quarter: 2004Q1

REPORT INFORMATION
  Report Type: 
  Country: None (occurrence: None)
  Receive Date: 20040319
  Receipt Date: 20040310
  Transmission Date: 20041129
  Serious: Yes (Hospitalization, Other)
  Sender: FDA-Public Use
  Company Number: PHNU2004DE01178

PATIENT
  Age: 54 Year
  Sex: Female

DRUGS (3)
  1. CLOZARIL [Suspect]
     Indication: SCHIZOPHRENIA
     Dosage: 450 MG/DAY
     Route: 048
  2. CLOZARIL [Suspect]
     Dosage: 150 MG/DAY
     Route: 048
  3. HALDOL DECANOATE 100 [Concomitant]

REACTIONS (5)
  - BRAIN OEDEMA [None]
  - GRAND MAL CONVULSION [None]
  - HYPONATRAEMIA [None]
  - POLYDIPSIA [None]
  - WATER INTOXICATION [None]
